FAERS Safety Report 15804586 (Version 1)
Quarter: 2019Q1

REPORT INFORMATION
  Report Type: Spontaneous
  Country: US (occurrence: US)
  Receive Date: 20190109
  Receipt Date: 20190109
  Transmission Date: 20190417
  Serious: No
  Sender: FDA-Public Use
  Company Number: US-ANIPHARMA-2018-US-016787

PATIENT
  Age: 23 Year
  Sex: Female
  Weight: 65.32 kg

DRUGS (4)
  1. GENOTROPIN [Suspect]
     Active Substance: SOMATROPIN
     Dosage: SUBCUTANEOUS INJECTION ONCE A DAY
     Route: 058
  2. KLONOPIN [Concomitant]
     Active Substance: CLONAZEPAM
     Dosage: ABOUT 2 YEARS AGO ON 0.5 MG ONCE DAILY AND INCREASED DOSE TO TWICE A DAY ABOUT 2 MONTHS AGO
     Route: 048
     Dates: start: 2016
  3. SEROQUEL [Concomitant]
     Active Substance: QUETIAPINE FUMARATE
     Dosage: AT NIGHT BY MOUTH
     Route: 048
     Dates: start: 2014
  4. FLUVOXAMINE (NON-SPECIFIC) [Suspect]
     Active Substance: FLUVOXAMINE
     Indication: OBSESSIVE-COMPULSIVE DISORDER
     Dosage: TWICE A DAY BY MOUTH
     Route: 048
     Dates: start: 2014

REACTIONS (1)
  - Anger [Unknown]
